FAERS Safety Report 4982352-7 (Version None)
Quarter: 2006Q1

REPORT INFORMATION
  Report Type: 
  Country: None (occurrence: None)
  Receive Date: 20060224
  Receipt Date: 20060224
  Transmission Date: 20060701
  Serious: No
  Sender: FDA-Public Use
  Company Number: None

PATIENT
  Age: 52 Year
  Sex: Female
  Weight: 68.0396 kg

DRUGS (2)
  1. LEVAQUIN [Suspect]
     Indication: BACTERIAL INFECTION
     Dosage: 500 MG TWICE A DAY PO
     Route: 048
     Dates: start: 20060217, end: 20060227
  2. LEVAQUIN [Suspect]
     Indication: LYMPH NODE PAIN
     Dosage: 500 MG TWICE A DAY PO
     Route: 048
     Dates: start: 20060217, end: 20060227

REACTIONS (5)
  - ARTHRALGIA [None]
  - DRUG PRESCRIBING ERROR [None]
  - DRUG TOXICITY [None]
  - JOINT EFFUSION [None]
  - MYALGIA [None]
